FAERS Safety Report 5528572-4 (Version None)
Quarter: 2007Q4

REPORT INFORMATION
  Report Type: 
  Country: None (occurrence: None)
  Receive Date: 20071123
  Receipt Date: 20071113
  Transmission Date: 20080405
  Serious: Yes (Death)
  Sender: FDA-Public Use
  Company Number: 2007S1000286

PATIENT
  Age: 77 Year
  Sex: Male

DRUGS (7)
  1. SORIATANE [Suspect]
     Indication: SKIN CANCER
     Dosage: 10 MG;QD;PO ; 25 MG;QD;PO ; 10 MG;QD;PO
     Route: 048
  2. SORIATANE [Suspect]
     Indication: SKIN CANCER
     Dosage: 10 MG;QD;PO ; 25 MG;QD;PO ; 10 MG;QD;PO
     Route: 048
  3. SORIATANE [Suspect]
     Indication: SKIN CANCER
     Dosage: 10 MG;QD;PO ; 25 MG;QD;PO ; 10 MG;QD;PO
     Route: 048
  4. CORTICOSTEROIDS [Concomitant]
  5. INTRONA /05982601/ [Concomitant]
  6. CHLORAMINOPHENE [Concomitant]
  7. EPUDIX [Concomitant]

REACTIONS (4)
  - RECURRENT CANCER [None]
  - RED BLOOD CELL SEDIMENTATION RATE INCREASED [None]
  - SKIN CANCER [None]
  - VITH NERVE PARALYSIS [None]
